FAERS Safety Report 5033296-6 (Version None)
Quarter: 2006Q2

REPORT INFORMATION
  Report Type: 
  Country: None (occurrence: None)
  Receive Date: 20060515
  Receipt Date: 20060410
  Transmission Date: 20061013
  Serious: No
  Sender: FDA-Public Use
  Company Number: S06-USA-01491-01

PATIENT
  Age: 83 Year
  Sex: Female

DRUGS (9)
  1. NAMENDA [Suspect]
     Indication: DEMENTIA ALZHEIMER'S TYPE
     Dosage: 5 MG QD PO
     Route: 048
     Dates: start: 20060331
  2. ARICEPT [Concomitant]
  3. PROTONIX [Concomitant]
  4. TRAZODONE HCL [Concomitant]
  5. LISINOPRIL [Concomitant]
  6. BETAPACE [Concomitant]
  7. GLYBURIDE [Concomitant]
  8. BUMEX [Concomitant]
  9. KLON-CON (POTASSIUM) [Concomitant]

REACTIONS (2)
  - DIZZINESS [None]
  - HEADACHE [None]
